FAERS Safety Report 9801155 (Version 1)
Quarter: 2014Q1

REPORT INFORMATION
  Report Type: Spontaneous
  Country: FR (occurrence: FR)
  Receive Date: 20140107
  Receipt Date: 20140107
  Transmission Date: 20141002
  Serious: Yes (Hospitalization)
  Sender: FDA-Public Use
  Company Number: FR-PFIZER INC-2013374290

PATIENT
  Age: 52 Year
  Sex: Female

DRUGS (2)
  1. DALACINE [Suspect]
     Indication: STAPHYLOCOCCAL INFECTION
     Dosage: UNK
     Route: 048
     Dates: start: 20131011, end: 20131024
  2. OFLOCET [Suspect]
     Indication: STAPHYLOCOCCAL INFECTION
     Dosage: UNK
     Route: 048
     Dates: start: 20131011, end: 20131024

REACTIONS (1)
  - Purpura [Recovered/Resolved]
